FAERS Safety Report 22215066 (Version 1)
Quarter: 2023Q2

REPORT INFORMATION
  Report Type: Spontaneous
  Country: NI (occurrence: NI)
  Receive Date: 20230415
  Receipt Date: 20230415
  Transmission Date: 20230722
  Serious: Yes (Death)
  Sender: FDA-Public Use
  Company Number: NI-002147023-NVSC2023NI086494

PATIENT
  Age: 54 Year
  Sex: Female

DRUGS (1)
  1. GLIVEC [Suspect]
     Active Substance: IMATINIB MESYLATE
     Indication: Chronic myeloid leukaemia
     Dosage: 800 MG (2X400 MG)
     Route: 065

REACTIONS (1)
  - Oncologic complication [Fatal]

NARRATIVE: CASE EVENT DATE: 20221215
